FAERS Safety Report 6458843-9 (Version None)
Quarter: 2009Q4

REPORT INFORMATION
  Report Type: 
  Country: None (occurrence: None)
  Receive Date: 20091125
  Receipt Date: 20091125
  Transmission Date: 20100525
  Serious: Yes (Disabling)
  Sender: FDA-Public Use
  Company Number: None

PATIENT
  Sex: Female
  Weight: 69.8539 kg

DRUGS (1)
  1. AMERGE [Suspect]
     Indication: MIGRAINE
     Dosage: 2.5 MG 1/1 REPEAT IN 2 HRS EVERY D PO
     Route: 048
     Dates: start: 20090725

REACTIONS (3)
  - AMNESIA [None]
  - CONFUSIONAL STATE [None]
  - MEMORY IMPAIRMENT [None]
